FAERS Safety Report 4785832-2 (Version None)
Quarter: 2005Q3

REPORT INFORMATION
  Report Type: 
  Country: None (occurrence: None)
  Receive Date: 20050929
  Receipt Date: 20050916
  Transmission Date: 20060218
  Serious: Yes (Other)
  Sender: FDA-Public Use
  Company Number: 2005003323

PATIENT
  Age: 40 Year
  Sex: Male

DRUGS (7)
  1. NEURONTIN [Suspect]
     Indication: CONVULSION
     Dosage: 1800 MG (DAILY), ORAL
     Route: 048
     Dates: start: 19960101, end: 20040101
  2. NEURONTIN [Suspect]
     Indication: NEUROPATHY PERIPHERAL
     Dosage: 1800 MG (DAILY), ORAL
     Route: 048
     Dates: start: 19960101, end: 20040101
  3. NEURONTIN [Suspect]
     Indication: PANIC DISORDER
     Dosage: 1800 MG (DAILY), ORAL
     Route: 048
     Dates: start: 19960101, end: 20040101
  4. NEURONTIN [Suspect]
     Indication: RESTLESS LEGS SYNDROME
     Dosage: 1800 MG (DAILY), ORAL
     Route: 048
     Dates: start: 19960101, end: 20040101
  5. TEGRETOL [Concomitant]
  6. ELAVIL [Concomitant]
  7. PROZAC [Concomitant]

REACTIONS (11)
  - ADJUSTMENT DISORDER [None]
  - BACK PAIN [None]
  - CONVULSION [None]
  - DRUG INEFFECTIVE [None]
  - EYE ROLLING [None]
  - MARITAL PROBLEM [None]
  - NEAR DROWNING [None]
  - PAIN IN EXTREMITY [None]
  - PANIC DISORDER [None]
  - SUICIDE ATTEMPT [None]
  - TONGUE BITING [None]
